FAERS Safety Report 24388859 (Version 2)
Quarter: 2024Q4

REPORT INFORMATION
  Report Type: Spontaneous
  Country: US (occurrence: US)
  Receive Date: 20241002
  Receipt Date: 20241007
  Transmission Date: 20250115
  Serious: Yes (Hospitalization, Other)
  Sender: MERCK
  Company Number: US-CUBIST PHARMACEUTICALS, INC.-2007S1000510

PATIENT
  Age: 8 Month
  Sex: Female

DRUGS (17)
  1. CUBICIN [Suspect]
     Active Substance: DAPTOMYCIN
     Indication: Enterococcal bacteraemia
     Dosage: 12 MG/KG, ONCE
     Route: 042
     Dates: start: 20071112, end: 20071112
  2. CUBICIN [Suspect]
     Active Substance: DAPTOMYCIN
     Dosage: 6 MG/KG, QD
     Route: 042
     Dates: start: 20071108, end: 20071118
  3. CUBICIN [Suspect]
     Active Substance: DAPTOMYCIN
     Dosage: 8 MG/KG, ONCE
     Route: 042
     Dates: start: 20071109, end: 20071112
  4. LINEZOLID [Concomitant]
     Active Substance: LINEZOLID
     Dosage: UNK UNK, UNK
     Dates: start: 20071029, end: 20071108
  5. PIPERACILLIN SODIUM\TAZOBACTAM SODIUM [Concomitant]
     Active Substance: PIPERACILLIN SODIUM\TAZOBACTAM SODIUM
     Dosage: UNK UNK, UNK
  6. FLUCONAZOLE [Concomitant]
     Active Substance: FLUCONAZOLE
     Dosage: UNK UNK, UNK
  7. GRANULOCYTE COLONY-STIMULATING FACTOR NOS [Concomitant]
     Active Substance: GRANULOCYTE COLONY-STIMULATING FACTOR NOS
     Dosage: UNK UNK, UNK
  8. METHYLPREDNISOLONE [Concomitant]
     Active Substance: METHYLPREDNISOLONE
     Dosage: UNK UNK, UNK
  9. METOCLOPRAMIDE [Concomitant]
     Active Substance: METOCLOPRAMIDE
     Dosage: UNK UNK, UNK
  10. MORPHINE [Concomitant]
     Active Substance: MORPHINE
     Dosage: UNK UNK, UNK
  11. DIPHENHYDRAMINE [Concomitant]
     Active Substance: DIPHENHYDRAMINE
     Dosage: UNK UNK, UNK
  12. NALOXONE [Concomitant]
     Active Substance: NALOXONE
     Dosage: UNK UNK, UNK
  13. SIMETHICONE (DIMETHICONE) [Concomitant]
     Active Substance: DIMETHICONE
     Dosage: UNK UNK, UNK
  14. ONDANSETRON [Concomitant]
     Active Substance: ONDANSETRON
     Dosage: UNK UNK, UNK
  15. ISRADIPINE [Concomitant]
     Active Substance: ISRADIPINE
     Dosage: UNK UNK, UNK
  16. LORAZEPAM [Concomitant]
     Active Substance: LORAZEPAM
     Dosage: UNK UNK, UNK
  17. TYLENOL [Concomitant]
     Active Substance: ACETAMINOPHEN
     Dosage: UNK UNK, UNK

REACTIONS (1)
  - Meningitis enterococcal [Recovered/Resolved]

NARRATIVE: CASE EVENT DATE: 20071110
